FAERS Safety Report 22963666 (Version 2)
Quarter: 2023Q4

REPORT INFORMATION
  Report Type: Spontaneous
  Country: US (occurrence: US)
  Receive Date: 20230921
  Receipt Date: 20231030
  Transmission Date: 20240110
  Serious: No
  Sender: FDA-Public Use
  Company Number: US-drreddys-SPO/USA/23/0173588

PATIENT
  Age: 79 Year
  Sex: Female

DRUGS (1)
  1. CLONIDINE [Suspect]
     Active Substance: CLONIDINE
     Indication: Hypertension

REACTIONS (4)
  - Headache [Unknown]
  - Dizziness [Unknown]
  - Product adhesion issue [Unknown]
  - Underdose [Unknown]
